FAERS Safety Report 9382009 (Version 1)
Quarter: 2013Q3

REPORT INFORMATION
  Report Type: Spontaneous
  Country: US (occurrence: US)
  Receive Date: 20130703
  Receipt Date: 20130703
  Transmission Date: 20140515
  Serious: Yes (Other)
  Sender: FDA-Public Use
  Company Number: PHEH2013US014053

PATIENT
  Age: 61 Year
  Sex: Female
  Weight: 58 kg

DRUGS (1)
  1. FEMARA [Suspect]

REACTIONS (10)
  - Libido decreased [Unknown]
  - Anaemia [Unknown]
  - Neutropenia [Recovered/Resolved]
  - Thrombocytopenia [Unknown]
  - Dyspnoea [Unknown]
  - Dysgeusia [Unknown]
  - Fatigue [Unknown]
  - Arthralgia [Unknown]
  - Disturbance in attention [Unknown]
  - Alopecia [Unknown]
